FAERS Safety Report 9238020 (Version 1)
Quarter: 2013Q1

REPORT INFORMATION
  Report Type: Spontaneous
  Country: US (occurrence: None)
  Receive Date: 20121106
  Receipt Date: 20121106
  Transmission Date: 20140127
  Serious: Yes (Other)
  Sender: FDA-Public Use
  Company Number: 1000038396

PATIENT
  Age: 52 Year
  Sex: Female

DRUGS (9)
  1. DALIRESP [Suspect]
     Indication: ALPHA-1 ANTI-TRYPSIN DEFICIENCY
     Dosage: 500 MCG Q4 DAYS (500 MCG, Q4
     Dates: start: 20120726, end: 20120830
  2. SPIRIVA (TIOTROPIUM BROMIDE) (TIOTROPIUM BROMIDE) [Concomitant]
  3. ADVAIR (FLUTICASONE, SALMETEROL) (FLUTICASONE, SALMETEROL) [Concomitant]
  4. PROAIR HFA (ALBUTEROL) (ALBUTEROL) [Concomitant]
  5. ALBUTEROL (ALBUTEROL) (ALBUTEROL) [Concomitant]
  6. WARFARIN (WARFARIN) (WARFARIN) [Concomitant]
  7. ALPRAZOLAM (ALPRAZOLAM) (ALPRAZOLAM) [Concomitant]
  8. PROLASATIN (ALPHA-1-ANTITRYPSIN) (ALPHA-1-ANTITRYPSIN) [Concomitant]
  9. GAMMUNEX-C (IMMUNE GLOBULIN) [Concomitant]

REACTIONS (5)
  - Suicidal ideation [None]
  - Depression [None]
  - Crying [None]
  - Diarrhoea [None]
  - Off label use [None]
